FAERS Safety Report 7680148-9 (Version None)
Quarter: 2011Q3

REPORT INFORMATION
  Report Type: 
  Country: None (occurrence: None)
  Receive Date: 20110811
  Receipt Date: 20110811
  Transmission Date: 20111222
  Serious: Yes (Other)
  Sender: FDA-Public Use
  Company Number: None

PATIENT
  Sex: Female

DRUGS (1)
  1. TARCEVA [Suspect]
     Indication: LUNG NEOPLASM MALIGNANT
     Dosage: 150MG 2X DAY PO
     Route: 048
     Dates: start: 20110729, end: 20110805

REACTIONS (3)
  - DIARRHOEA [None]
  - RASH [None]
  - INCORRECT DOSE ADMINISTERED [None]
